FAERS Safety Report 24854022 (Version 1)
Quarter: 2025Q1

REPORT INFORMATION
  Report Type: Spontaneous
  Country: US (occurrence: US)
  Receive Date: 20250117
  Receipt Date: 20250117
  Transmission Date: 20250408
  Serious: No
  Sender: ENDO
  Company Number: US-ENDO PHARMACEUTICALS INC-2024-001670

PATIENT
  Sex: Male

DRUGS (2)
  1. ENDOCET [Suspect]
     Active Substance: ACETAMINOPHEN\OXYCODONE HYDROCHLORIDE
     Indication: Pain
     Route: 065
     Dates: start: 2008
  2. ENDOCET [Suspect]
     Active Substance: ACETAMINOPHEN\OXYCODONE HYDROCHLORIDE
     Route: 065
     Dates: start: 20240409

REACTIONS (4)
  - Visual impairment [Recovering/Resolving]
  - Drug ineffective [Not Recovered/Not Resolved]
  - Product physical issue [Unknown]
  - Product formulation issue [Unknown]
